FAERS Safety Report 8505170-1 (Version None)
Quarter: 2012Q3

REPORT INFORMATION
  Report Type: 
  Country: None (occurrence: None)
  Receive Date: 20120712
  Receipt Date: 20120628
  Transmission Date: 20120928
  Serious: Yes (Hospitalization)
  Sender: FDA-Public Use
  Company Number: JP-UCBSA-061097

PATIENT
  Age: 62 Year
  Sex: Female

DRUGS (14)
  1. METHOTREXATE [Concomitant]
     Dosage: DAILY DOSE-14 MG/WEEK
     Dates: start: 20120621
  2. ETODOLAC [Concomitant]
     Dosage: DAILY DOSE-400 MG
     Dates: start: 20120315
  3. ETIZOLAM [Concomitant]
     Dosage: DAILY DOSE-1 MG
     Dates: start: 20120417
  4. MISOPROSTOL [Concomitant]
     Dosage: DAILY DOSE-400 MCG
     Dates: start: 20120417
  5. L-CYSTEINE [Concomitant]
     Dosage: DAILY DOSE-240 MG
     Dates: start: 20110329
  6. CIMZIA [Suspect]
     Indication: RHEUMATOID ARTHRITIS
     Dosage: UNKNOWN
     Route: 058
     Dates: start: 20120509
  7. TRANEXAMIC ACID [Concomitant]
     Dosage: DAILY DOSE-750 MG
     Dates: start: 20110329
  8. KETOTIFEN FUMARATE [Concomitant]
     Dosage: DAILY DOSE-QS
     Dates: start: 20100922
  9. HYDROQUINONE [Concomitant]
     Dosage: QS
     Dates: start: 20110329
  10. TAUROMIN [Concomitant]
     Dosage: DAILY DOSE-12 TAB
     Dates: start: 19850101
  11. SENNOSIDE [Concomitant]
     Dosage: DAILY DOSE-QS
     Dates: start: 20120522
  12. ASCORBIC ACID_CALCIUM PANTOTHENATE [Concomitant]
     Dosage: DAILY DOSE- 3 TAB
     Dates: start: 20110329
  13. FOLIC ACID [Concomitant]
     Dosage: DAILY DOSE-5 MG
     Dates: start: 20120512
  14. SODIUM HYALURONATE [Concomitant]
     Dosage: QS
     Dates: start: 20100820

REACTIONS (1)
  - PNEUMOCYSTIS JIROVECI PNEUMONIA [None]
